FAERS Safety Report 12325260 (Version 5)
Quarter: 2016Q3

REPORT INFORMATION
  Report Type: Report from Study
  Country: JP (occurrence: JP)
  Receive Date: 20160502
  Receipt Date: 20160708
  Transmission Date: 20161109
  Serious: Yes (Death)
  Sender: FDA-Public Use
  Company Number: JP-B.I. PHARMACEUTICALS,INC./RIDGEFIELD-2016-BI-09342BI

PATIENT
  Age: 76 Year
  Sex: Male
  Weight: 66.7 kg

DRUGS (7)
  1. ELIQUIS [Suspect]
     Active Substance: APIXABAN
     Indication: ATRIAL FIBRILLATION
     Dosage: 10 MG
     Route: 048
     Dates: start: 20140609, end: 20160212
  2. GLYCEREB [Concomitant]
     Indication: BRAIN STEM HAEMORRHAGE
     Dosage: 20 ML
     Route: 042
     Dates: start: 20160212, end: 20160213
  3. SOLDEM [Concomitant]
     Active Substance: DEXTROSE\POTASSIUM CHLORIDE\SODIUM CHLORIDE\SODIUM LACTATE
     Indication: BRAIN STEM HAEMORRHAGE
     Dosage: 500 ML
     Route: 042
     Dates: start: 20160212, end: 20160213
  4. BI 655075 [Suspect]
     Active Substance: IDARUCIZUMAB
     Indication: PROCOAGULANT THERAPY
     Dosage: 5 G
     Route: 042
     Dates: start: 20160213, end: 20160213
  5. NICARDIPINE [Concomitant]
     Active Substance: NICARDIPINE
     Indication: BRAIN STEM HAEMORRHAGE
     Dosage: 20 MG
     Route: 042
     Dates: start: 20160212, end: 20160213
  6. BI 655075 [Suspect]
     Active Substance: IDARUCIZUMAB
     Indication: BRAIN STEM HAEMORRHAGE
  7. FAMOTIDINE. [Concomitant]
     Active Substance: FAMOTIDINE
     Indication: PROPHYLAXIS
     Dosage: 20 MG
     Route: 042
     Dates: start: 20160212, end: 20160213

REACTIONS (1)
  - Brain stem haemorrhage [Fatal]

NARRATIVE: CASE EVENT DATE: 20160213
